FAERS Safety Report 7809305-5 (Version None)
Quarter: 2011Q4

REPORT INFORMATION
  Report Type: 
  Country: None (occurrence: None)
  Receive Date: 20111012
  Receipt Date: 20110923
  Transmission Date: 20120403
  Serious: Yes (Other)
  Sender: FDA-Public Use
  Company Number: US-SANOFI-AVENTIS-2011SA063333

PATIENT
  Age: 54 Year
  Sex: Female

DRUGS (2)
  1. LANTUS [Suspect]
     Dosage: PRODUCT START DATE MENTIONED AS SEVERAL YEARS AGO DOSE:34 UNIT(S)
     Route: 058
  2. SOLOSTAR [Suspect]
     Dosage: PRODUCT START DATE MENTIONED AS SEVERAL YEARS AGO

REACTIONS (2)
  - BLOOD GLUCOSE INCREASED [None]
  - DEVICE MALFUNCTION [None]
